FAERS Safety Report 20810887 (Version 7)
Quarter: 2023Q2

REPORT INFORMATION
  Report Type: Spontaneous
  Country: US (occurrence: US)
  Receive Date: 20220510
  Receipt Date: 20230502
  Transmission Date: 20230721
  Serious: Yes (Other)
  Sender: FDA-Public Use
  Company Number: US-PFIZER INC-2018134318

PATIENT
  Age: 61 Year
  Sex: Female

DRUGS (1)
  1. XELJANZ XR [Suspect]
     Active Substance: TOFACITINIB CITRATE
     Indication: Rheumatoid arthritis
     Dosage: 11 MG, DAILY
     Route: 048
     Dates: start: 201612

REACTIONS (11)
  - Bunion operation [Unknown]
  - Poor quality product administered [Unknown]
  - Product quality issue [Unknown]
  - Product dose omission issue [Unknown]
  - Product packaging quantity issue [Unknown]
  - Condition aggravated [Unknown]
  - Gait disturbance [Unknown]
  - COVID-19 [Unknown]
  - Illness [Unknown]
  - Impaired work ability [Unknown]
  - Dysphonia [Unknown]
